FAERS Safety Report 13697498 (Version 2)
Quarter: 2017Q3

REPORT INFORMATION
  Report Type: Spontaneous
  Country: US (occurrence: US)
  Receive Date: 20170628
  Receipt Date: 20170705
  Transmission Date: 20171127
  Serious: No
  Sender: FDA-Public Use
  Company Number: US-GLAXOSMITHKLINE-US2017096833

PATIENT
  Age: 18 Year
  Sex: Male

DRUGS (1)
  1. ABREVA [Suspect]
     Active Substance: DOCOSANOL
     Indication: ORAL HERPES
     Dosage: UNK
     Dates: start: 20170619, end: 20170620

REACTIONS (4)
  - Condition aggravated [Recovered/Resolved]
  - Lip swelling [Recovered/Resolved]
  - Oral herpes [Recovered/Resolved]
  - Lip pain [Recovered/Resolved]

NARRATIVE: CASE EVENT DATE: 20170619
